FAERS Safety Report 7659943-8 (Version None)
Quarter: 2011Q3

REPORT INFORMATION
  Report Type: 
  Country: None (occurrence: None)
  Receive Date: 20110805
  Receipt Date: 20110711
  Transmission Date: 20111222
  Serious: Yes (Hospitalization, Other)
  Sender: FDA-Public Use
  Company Number: US-BAYER-201040994NA

PATIENT
  Age: 69 Year
  Sex: Female

DRUGS (1)
  1. BETASERON [Suspect]
     Indication: RELAPSING-REMITTING MULTIPLE SCLEROSIS
     Dosage: 8 MIU, QOD
     Route: 058
     Dates: start: 20100710

REACTIONS (11)
  - CHILLS [None]
  - INJECTION SITE ERYTHEMA [None]
  - MUSCLE SPASMS [None]
  - PULMONARY THROMBOSIS [None]
  - POLLAKIURIA [None]
  - URINE ABNORMALITY [None]
  - FALL [None]
  - STERNAL FRACTURE [None]
  - URINARY TRACT INFECTION [None]
  - INJECTION SITE REACTION [None]
  - HYPERHIDROSIS [None]
